FAERS Safety Report 23097661 (Version 1)
Quarter: 2023Q4

REPORT INFORMATION
  Report Type: Spontaneous
  Country: US (occurrence: US)
  Receive Date: 20231023
  Receipt Date: 20231023
  Transmission Date: 20240110
  Serious: Yes (Hospitalization, Other)
  Sender: FDA-Public Use
  Company Number: US-CMP PHARMA-2023CMP00054

PATIENT
  Age: 81 Year
  Sex: Male

DRUGS (2)
  1. AMLODIPINE [Suspect]
     Active Substance: AMLODIPINE BESYLATE
  2. METOPROLOL [Suspect]
     Active Substance: METOPROLOL

REACTIONS (4)
  - BRASH syndrome [Recovered/Resolved]
  - Hypothermia [Recovered/Resolved]
  - Atrial fibrillation [Recovered/Resolved]
  - Blood thyroid stimulating hormone increased [Recovered/Resolved]
